FAERS Safety Report 10473735 (Version 4)
Quarter: 2015Q3

REPORT INFORMATION
  Report Type: Report from Study
  Country: US (occurrence: US)
  Receive Date: 20140924
  Receipt Date: 20150720
  Transmission Date: 20151125
  Serious: Yes (Death, Hospitalization, Other)
  Sender: FDA-Public Use
  Company Number: US-BRISTOL-MYERS SQUIBB COMPANY-21155007

PATIENT
  Age: 61 Year
  Sex: Female
  Weight: 75 kg

DRUGS (1)
  1. IPILIMUMAB [Suspect]
     Active Substance: IPILIMUMAB
     Indication: SQUAMOUS CELL CARCINOMA OF THE CERVIX
     Dosage: 10 MG/KG, UNK
     Route: 042
     Dates: start: 20140402

REACTIONS (9)
  - Large intestine perforation [Fatal]
  - Hypercalcaemia [Recovered/Resolved with Sequelae]
  - Colonic fistula [Recovered/Resolved with Sequelae]
  - Hypokalaemia [Unknown]
  - Blood alkaline phosphatase increased [Unknown]
  - Lymphocyte count decreased [Unknown]
  - Hypocalcaemia [Unknown]
  - Anaemia [Unknown]
  - Hypophosphataemia [Unknown]

NARRATIVE: CASE EVENT DATE: 20140614
